FAERS Safety Report 7097906-4 (Version None)
Quarter: 2010Q4

REPORT INFORMATION
  Report Type: 
  Country: None (occurrence: None)
  Receive Date: 20101112
  Receipt Date: 20101029
  Transmission Date: 20110411
  Serious: Yes (Other)
  Sender: FDA-Public Use
  Company Number: US-JNJFOC-20100509013

PATIENT
  Sex: Male

DRUGS (2)
  1. LEVAQUIN [Suspect]
     Indication: GASTRIC DISORDER
     Route: 048
  2. FLAGYL [Concomitant]
     Indication: GASTRIC DISORDER
     Route: 065

REACTIONS (3)
  - MUSCLE ATROPHY [None]
  - ROTATOR CUFF SYNDROME [None]
  - TENDON RUPTURE [None]
